FAERS Safety Report 15155866 (Version 1)
Quarter: 2018Q3

REPORT INFORMATION
  Report Type: Spontaneous
  Country: DE (occurrence: DE)
  Receive Date: 20180717
  Receipt Date: 20180717
  Transmission Date: 20181010
  Serious: Yes (Hospitalization)
  Sender: FDA-Public Use
  Company Number: DE-US WORLDMEDS, LLC-STA_00020281

PATIENT
  Sex: Female

DRUGS (2)
  1. LEVODOPA [Concomitant]
     Active Substance: LEVODOPA
  2. APOMORPHINE HYDROCHLORIDE [Suspect]
     Active Substance: APOMORPHINE HYDROCHLORIDE
     Indication: PARKINSON^S DISEASE
     Dosage: TWICE FER 5 MG/ ML; 10 ML
     Route: 058
     Dates: start: 20160713

REACTIONS (12)
  - General physical health deterioration [Unknown]
  - Diarrhoea [Unknown]
  - Atonic seizures [Unknown]
  - Incorrect drug administration duration [Unknown]
  - Injection site erythema [Recovered/Resolved]
  - Oedema [Recovered/Resolved with Sequelae]
  - Confusional state [Unknown]
  - Overdose [Unknown]
  - Mobility decreased [Unknown]
  - Dysphagia [Unknown]
  - Nutritional condition abnormal [Unknown]
  - Hypokalaemia [Unknown]

NARRATIVE: CASE EVENT DATE: 2016
